FAERS Safety Report 21661041 (Version 2)
Quarter: 2022Q4

REPORT INFORMATION
  Report Type: Spontaneous
  Country: FR (occurrence: FR)
  Receive Date: 20221130
  Receipt Date: 20221207
  Transmission Date: 20230113
  Serious: Yes (Life-Threatening, Hospitalization, Other)
  Sender: FDA-Public Use
  Company Number: FR-AFSSAPS-PC20222752

PATIENT
  Age: 19 Year
  Sex: Male
  Weight: 77 kg

DRUGS (1)
  1. ACETAMINOPHEN [Suspect]
     Active Substance: ACETAMINOPHEN
     Indication: Headache
     Dosage: NSP
     Route: 048
     Dates: start: 2022

REACTIONS (2)
  - Headache [Recovering/Resolving]
  - Drug abuser [Recovering/Resolving]

NARRATIVE: CASE EVENT DATE: 20220101
